FAERS Safety Report 20120024 (Version 1)
Quarter: 2021Q4

REPORT INFORMATION
  Report Type: Spontaneous
  Country: US (occurrence: US)
  Receive Date: 20211126
  Receipt Date: 20211126
  Transmission Date: 20220303
  Serious: No
  Sender: FDA-Public Use
  Company Number: US-AMGEN-USASP2021182244

PATIENT
  Age: 50 Year
  Sex: Female

DRUGS (1)
  1. BLINCYTO [Suspect]
     Active Substance: BLINATUMOMAB
     Indication: Acute lymphocytic leukaemia
     Dosage: 95 MICROGRAM FOR 7 DAYS
     Route: 065
     Dates: start: 20211109

REACTIONS (1)
  - Therapy change [Unknown]

NARRATIVE: CASE EVENT DATE: 20211116
